FAERS Safety Report 4479559-4 (Version None)
Quarter: 2004Q4

REPORT INFORMATION
  Report Type: 
  Country: None (occurrence: None)
  Receive Date: 20041015
  Receipt Date: 20041001
  Transmission Date: 20050328
  Serious: Yes (Hospitalization)
  Sender: FDA-Public Use
  Company Number: 2004AP04089

PATIENT
  Age: 75 Year
  Sex: Female

DRUGS (11)
  1. IRESSA [Suspect]
     Indication: LUNG SQUAMOUS CELL CARCINOMA STAGE UNSPECIFIED
     Dosage: 250 MG DAILY PO
     Route: 048
     Dates: start: 20040726, end: 20040805
  2. IRESSA [Suspect]
     Indication: LUNG SQUAMOUS CELL CARCINOMA STAGE UNSPECIFIED
     Dosage: 250 MG DAILY PO
     Route: 048
     Dates: start: 20040807, end: 20040817
  3. LANIRAPID [Concomitant]
  4. DILTIAZEM HYDROCHLORIDE [Concomitant]
  5. CIBENOL [Concomitant]
  6. PRIMPERAN INJ [Concomitant]
  7. DIOVAN [Concomitant]
  8. LIPOVAS ^BANYU^ [Concomitant]
  9. ROCALTROL [Concomitant]
  10. NAVELBINE [Concomitant]
  11. RADIOTHERAPY [Concomitant]

REACTIONS (2)
  - DISEASE PROGRESSION [None]
  - WHITE BLOOD CELL COUNT DECREASED [None]
